FAERS Safety Report 17044483 (Version 1)
Quarter: 2019Q4

REPORT INFORMATION
  Report Type: Spontaneous
  Country: US (occurrence: US)
  Receive Date: 20191117
  Receipt Date: 20191117
  Transmission Date: 20200122
  Serious: Yes (Other)
  Sender: FDA-Public Use
  Company Number: None

PATIENT
  Age: 4 Week
  Sex: Female
  Weight: 63 kg

DRUGS (8)
  1. IRON [Concomitant]
     Active Substance: IRON
  2. ORILISSA [Suspect]
     Active Substance: ELAGOLIX SODIUM
  3. LUPRON DEPOT [Suspect]
     Active Substance: LEUPROLIDE ACETATE
     Indication: ENDOMETRIOSIS
  4. AMBIEN [Concomitant]
     Active Substance: ZOLPIDEM TARTRATE
  5. OXYCODONE [Concomitant]
     Active Substance: OXYCODONE
  6. SOMA [Concomitant]
     Active Substance: CARISOPRODOL
  7. PROMETHAZINE [Concomitant]
     Active Substance: PROMETHAZINE HYDROCHLORIDE
  8. VITAMIN C [Concomitant]
     Active Substance: ASCORBIC ACID

REACTIONS (4)
  - Adverse drug reaction [None]
  - Drug ineffective [None]
  - Ovarian disorder [None]
  - Anti-Muellerian hormone level [None]

NARRATIVE: CASE EVENT DATE: 20190627
